FAERS Safety Report 10247164 (Version 1)
Quarter: 2014Q2

REPORT INFORMATION
  Report Type: Spontaneous
  Country: FR (occurrence: FR)
  Receive Date: 20140619
  Receipt Date: 20140619
  Transmission Date: 20141212
  Serious: Yes (Other)
  Sender: FDA-Public Use
  Company Number: FR-TEVA-488586ISR

PATIENT
  Age: 51 Year
  Sex: Female

DRUGS (9)
  1. FLUOROURACIL [Suspect]
     Route: 065
  2. VINORELBINE [Suspect]
     Indication: CHEMOTHERAPY
     Route: 065
  3. TRASTUZUMAB [Suspect]
     Indication: CHEMOTHERAPY
     Route: 065
  4. EPIRUBICIN [Suspect]
     Dosage: 50 MG/M2
     Route: 065
  5. CYCLOPHOSPHAMIDE [Suspect]
     Route: 065
  6. CAPECITABINE [Suspect]
     Indication: CHEMOTHERAPY
     Route: 065
     Dates: start: 200701
  7. LAPATINIB [Suspect]
     Indication: CHEMOTHERAPY
     Route: 065
  8. DOCETAXEL [Suspect]
     Indication: CHEMOTHERAPY
     Dosage: 75 MG/M2 EVERY 21 DAYS
     Route: 065
  9. AFLIBERCEPT [Suspect]
     Indication: CHEMOTHERAPY
     Dosage: 2 MG/KG EVERY 21 DAYS
     Route: 065

REACTIONS (4)
  - Anaemia [Unknown]
  - Asthenia [Unknown]
  - Hyperthermia [Unknown]
  - Palmar-plantar erythrodysaesthesia syndrome [Unknown]
